FAERS Safety Report 4957470-X (Version None)
Quarter: 2006Q1

REPORT INFORMATION
  Report Type: 
  Country: None (occurrence: None)
  Receive Date: 20060328
  Receipt Date: 20060328
  Transmission Date: 20060701
  Serious: Yes (Other)
  Sender: FDA-Public Use
  Company Number: None

PATIENT
  Age: 6 Year
  Sex: Male
  Weight: 28.123 kg

DRUGS (1)
  1. ZYPREXA ZYDIS [Suspect]
     Dosage: 5 MG 1 X DAY PO
     Route: 048

REACTIONS (5)
  - BLOOD GLUCOSE ABNORMAL [None]
  - HEART RATE INCREASED [None]
  - INCONTINENCE [None]
  - THIRST [None]
  - WEIGHT INCREASED [None]
